FAERS Safety Report 7600303-3 (Version None)
Quarter: 2011Q2

REPORT INFORMATION
  Report Type: 
  Country: None (occurrence: None)
  Receive Date: 20110629
  Receipt Date: 20110617
  Transmission Date: 20111010
  Serious: Yes (Other)
  Sender: FDA-Public Use
  Company Number: JP-2011-10797

PATIENT
  Age: 74 Year
  Sex: Male

DRUGS (10)
  1. PLETAL [Suspect]
     Indication: SINUS BRADYCARDIA
     Dosage: 100 MG MILLIGRAM(S), BID, ORAL
     Route: 048
     Dates: start: 20100820, end: 20100909
  2. CALTAN (CALCIUM CARBONATE) [Concomitant]
  3. AMLODIPINE [Concomitant]
  4. ASPIRIN [Concomitant]
  5. REMITCH (NALFURAFINE HYDROCHLORIDE) [Concomitant]
  6. PROMAC (POLAPREZINC) [Concomitant]
  7. RISUMIC (AMEZINIUM METILSULFATE) [Concomitant]
  8. ATARAX-P (HYROXYZINE PAMOATE) [Concomitant]
  9. BIO-THREE (CLOSTRIDIUM BUTYRICUM COMBINED DRUG) [Concomitant]
  10. ISOSORBIDE DINITRATE [Concomitant]

REACTIONS (3)
  - EOSINOPHIL PERCENTAGE INCREASED [None]
  - GRANULOCYTE COUNT DECREASED [None]
  - WHITE BLOOD CELL COUNT DECREASED [None]
